FAERS Safety Report 8183556-5 (Version None)
Quarter: 2012Q1

REPORT INFORMATION
  Report Type: 
  Country: None (occurrence: None)
  Receive Date: 20120130
  Receipt Date: 20111111
  Transmission Date: 20120608
  Serious: Yes (Other)
  Sender: FDA-Public Use
  Company Number: 041555

PATIENT
  Age: 41 Year
  Sex: Male
  Weight: 86.1 kg

DRUGS (8)
  1. VORICONAZOLE [Suspect]
     Indication: FUNGAL INFECTION
     Dates: start: 20110728, end: 20110923
  2. NEXIUM [Concomitant]
  3. TRIMETHOPRIM [Concomitant]
  4. KEPPRA [Suspect]
     Indication: CONVULSION
     Dates: start: 20110707
  5. DEXAMETHASONE [Concomitant]
  6. UNKNOWN (CRIZOTINIB) [Suspect]
     Indication: NON-SMALL CELL LUNG CANCER
     Dosage: (200 MG BID ORAL)
     Route: 048
     Dates: start: 20090521, end: 20110822
  7. FUROSEMIDE [Concomitant]
  8. ENOXAPARIN SODIUM [Concomitant]

REACTIONS (1)
  - ALANINE AMINOTRANSFERASE INCREASED [None]
